FAERS Safety Report 24255121 (Version 1)
Quarter: 2024Q3

REPORT INFORMATION
  Report Type: Spontaneous
  Country: ES (occurrence: None)
  Receive Date: 20240827
  Receipt Date: 20240827
  Transmission Date: 20241017
  Serious: Yes (Other)
  Sender: ASTRAZENECA
  Company Number: 2024A188792

PATIENT
  Age: 47 Year
  Sex: Male

DRUGS (9)
  1. TEZEPELUMAB [Suspect]
     Active Substance: TEZEPELUMAB
     Indication: Asthma
     Dosage: 2.21, 0.1 CC SOLUTION B + 0.9 CC SSA, 1, 30 MIN
  2. TEZEPELUMAB [Suspect]
     Active Substance: TEZEPELUMAB
     Indication: Asthma
     Dosage: 4.25 , 0.2 CC SOLUTION B + 0.8 CC SS, 1, 30 MIN
  3. TEZEPELUMAB [Suspect]
     Active Substance: TEZEPELUMAB
     Indication: Asthma
     Dosage: 8.51 , 0.4 CC SOLUTION B + 0.6 CC SS, 1, 30 MIN
  4. TEZEPELUMAB [Suspect]
     Active Substance: TEZEPELUMAB
     Indication: Asthma
     Dosage: 17.02 , 0.8 CC SOLUTION B + 0.2 CC SS, 1, 30 MIN
  5. TEZEPELUMAB [Suspect]
     Active Substance: TEZEPELUMAB
     Indication: Asthma
     Dosage: 17.02 , 0.8 CC SOLUTION B + 0.2 CC SS, 1, 30 MIN
  6. TEZEPELUMAB [Suspect]
     Active Substance: TEZEPELUMAB
     Indication: Asthma
     Dosage: 34.04 ,1.6 CC SOLUTION B + 0.4 CC SS, 2, 30 MIN
  7. TEZEPELUMAB [Suspect]
     Active Substance: TEZEPELUMAB
     Indication: Asthma
     Dosage: 64.96, 0.6 CC SOLUTION A + 0.4 CC SSB, 1, 30 MIN
  8. TEZEPELUMAB [Suspect]
     Active Substance: TEZEPELUMAB
     Indication: Asthma
     Dosage: 76.96, 0.7 CC SOLUTION A + 0.3 CC SS, 1, 30 MIN , TOTAL DOSE -208.86
  9. BENRALIZUMAB [Suspect]
     Active Substance: BENRALIZUMAB
     Indication: Asthma
     Route: 058

REACTIONS (8)
  - Angioedema [Recovered/Resolved]
  - Pruritus [Recovered/Resolved]
  - Erythema [Recovered/Resolved]
  - Throat tightness [Recovered/Resolved]
  - Throat irritation [Recovered/Resolved]
  - Pruritus genital [Recovered/Resolved]
  - Urticaria [Recovered/Resolved]
  - Wheezing [Recovered/Resolved]
